FAERS Safety Report 8454451-9 (Version None)
Quarter: 2012Q2

REPORT INFORMATION
  Report Type: 
  Country: None (occurrence: None)
  Receive Date: 20120621
  Receipt Date: 20120612
  Transmission Date: 20120825
  Serious: No
  Sender: FDA-Public Use
  Company Number: US-BIOGENIDEC-2012BI020753

PATIENT
  Age: 63 Year
  Sex: Male

DRUGS (1)
  1. TYSABRI [Suspect]
     Indication: MULTIPLE SCLEROSIS
     Route: 042
     Dates: start: 20110111, end: 20120116

REACTIONS (4)
  - GAIT DISTURBANCE [None]
  - MENTAL IMPAIRMENT [None]
  - BLOOD CREATININE INCREASED [None]
  - MULTIPLE SCLEROSIS [None]
